FAERS Safety Report 25087803 (Version 1)
Quarter: 2025Q1

REPORT INFORMATION
  Report Type: Spontaneous
  Country: GB (occurrence: GB)
  Receive Date: 20250318
  Receipt Date: 20250318
  Transmission Date: 20250409
  Serious: Yes (Other)
  Sender: MSN LABORATORIES PRIVATE LIMITED
  Company Number: GB-MHRA-TPP19743068C11168560YC1741012519610

PATIENT

DRUGS (8)
  1. ATORVASTATIN [Suspect]
     Active Substance: ATORVASTATIN
     Indication: Blood cholesterol increased
     Dosage: EACH EVENING
     Route: 048
     Dates: start: 20240919
  2. DAPAGLIFLOZIN [Concomitant]
     Active Substance: DAPAGLIFLOZIN
     Indication: Cardiac failure
     Dosage: TAKE ONE DAILY FOR HEART FAILURE
     Route: 065
     Dates: start: 20240919
  3. AMIODARONE [Concomitant]
     Active Substance: AMIODARONE
     Indication: Atrial fibrillation
     Dosage: TAKE ONE DAILY FOR ATRIAL FIBRILLATION
     Route: 065
     Dates: start: 20240919
  4. EDOXABAN [Concomitant]
     Active Substance: EDOXABAN
     Dosage: TAKE ONE IN THE MORNING TO PREVENT STROKE
     Route: 065
     Dates: start: 20240919
  5. LANSOPRAZOLE [Concomitant]
     Active Substance: LANSOPRAZOLE
     Dosage: TAKE ONE ONCE DAILY TO PROTECT YOUR STOMACH
     Route: 065
     Dates: start: 20240919
  6. METFORMIN HYDROCHLORIDE [Concomitant]
     Active Substance: METFORMIN HYDROCHLORIDE
     Indication: Diabetes mellitus
     Dosage: TAKE ONE TWICE DAILY WITH FOOD FOR DIABETES (ME...
     Route: 065
     Dates: start: 20240919
  7. SACUBITRIL [Concomitant]
     Active Substance: SACUBITRIL
     Indication: Cardiac failure
     Dosage: TAKE ONE TWICE DAILY FOR HEART FAILURE
     Route: 065
     Dates: start: 20241102
  8. SPIRONOLACTONE [Concomitant]
     Active Substance: SPIRONOLACTONE
     Indication: Cardiac failure
     Dosage: TAKE ONE DAILY FOR HEART FAILURE
     Route: 065
     Dates: start: 20250115

REACTIONS (2)
  - Brain fog [Recovered/Resolved]
  - Confusional state [Recovered/Resolved]
